FAERS Safety Report 13442024 (Version 1)
Quarter: 2017Q2

REPORT INFORMATION
  Report Type: Spontaneous
  Country: US (occurrence: US)
  Receive Date: 20170413
  Receipt Date: 20170413
  Transmission Date: 20170830
  Serious: Yes (Other)
  Sender: FDA-Public Use
  Company Number: US-AMGEN-USASP2017053998

PATIENT
  Age: 65 Year
  Sex: Female

DRUGS (11)
  1. SENSIPAR [Suspect]
     Active Substance: CINACALCET HYDROCHLORIDE
     Indication: PARATHYROID DISORDER
     Dosage: UNK
     Route: 065
     Dates: end: 201702
  2. CEPHALEXIN. [Concomitant]
     Active Substance: CEPHALEXIN
     Dosage: 250 MG, UNK
  3. OXYBUTYNIN [Concomitant]
     Active Substance: OXYBUTYNIN
     Dosage: 5 MG, UNK
  4. PREDNISONE. [Concomitant]
     Active Substance: PREDNISONE
     Dosage: 1.5 MG, QD
  5. PANTOPRAZOLE [Concomitant]
     Active Substance: PANTOPRAZOLE
     Dosage: 40 MG, QD
  6. AMLODIPINE [Concomitant]
     Active Substance: AMLODIPINE BESYLATE
     Dosage: 10 MG, UNK
  7. BACTRIM [Concomitant]
     Active Substance: SULFAMETHOXAZOLE\TRIMETHOPRIM
     Dosage: 400 MG, UNK
  8. BACTRIM [Concomitant]
     Active Substance: SULFAMETHOXAZOLE\TRIMETHOPRIM
     Dosage: 80 MG, UNK
  9. LASIX [Concomitant]
     Active Substance: FUROSEMIDE
     Dosage: 40 MG, UNK
  10. METOPROLOL. [Concomitant]
     Active Substance: METOPROLOL
     Dosage: 25 MG, UNK
  11. MYCOPHENOLATE [Concomitant]
     Active Substance: MYCOPHENOLIC ACID
     Dosage: 250 MG, BID

REACTIONS (2)
  - Drug dose omission [Unknown]
  - Renal transplant [Unknown]

NARRATIVE: CASE EVENT DATE: 201504
